FAERS Safety Report 9152201 (Version 1)
Quarter: 2013Q1

REPORT INFORMATION
  Report Type: Spontaneous
  Country: US (occurrence: US)
  Receive Date: 20130308
  Receipt Date: 20130308
  Transmission Date: 20140127
  Serious: Yes (Other)
  Sender: FDA-Public Use
  Company Number: US-ASTRAZENECA-2013SE15141

PATIENT
  Age: 61 Year
  Sex: Female
  Weight: 61.7 kg

DRUGS (10)
  1. TENORMIN [Suspect]
     Indication: BLOOD PRESSURE ABNORMAL
     Route: 048
  2. NEXIUM [Suspect]
     Indication: GASTROOESOPHAGEAL REFLUX DISEASE
     Route: 048
     Dates: start: 2007
  3. LIPITOR [Concomitant]
     Indication: BLOOD CHOLESTEROL ABNORMAL
     Route: 048
  4. ALLOPURINOL [Concomitant]
     Indication: RENAL DISORDER
     Route: 048
  5. NITROSTAT [Concomitant]
     Indication: CARDIAC DISORDER
     Dosage: 0.4 PRN
     Route: 048
  6. EYE DROPS [Concomitant]
     Indication: BLINDNESS
     Dosage: 1 DROP EACH EYE BID
     Route: 050
  7. NORVASC [Concomitant]
     Indication: BLOOD PRESSURE ABNORMAL
     Route: 048
  8. RENAL CAPS [Concomitant]
     Indication: RENAL FAILURE
     Dosage: DAILY
     Route: 048
  9. LEMZALA [Concomitant]
     Indication: DIALYSIS
     Dosage: DAILY
     Route: 050
  10. EYE INJECTIONS [Concomitant]
     Indication: BLINDNESS
     Dosage: Q4WK
     Route: 050

REACTIONS (5)
  - Blindness [Not Recovered/Not Resolved]
  - Renal failure [Not Recovered/Not Resolved]
  - Cerebrovascular accident [Not Recovered/Not Resolved]
  - Optic nerve neoplasm [Not Recovered/Not Resolved]
  - Intentional drug misuse [Not Recovered/Not Resolved]
